FAERS Safety Report 16361283 (Version 1)
Quarter: 2019Q2

REPORT INFORMATION
  Report Type: Spontaneous
  Country: US (occurrence: US)
  Receive Date: 20190419
  Receipt Date: 20190419
  Transmission Date: 20190711
  Serious: No
  Sender: FDA-Public Use
  Company Number: None

PATIENT
  Age: 46 Year
  Sex: Female

DRUGS (1)
  1. TALTZ [Suspect]
     Active Substance: IXEKIZUMAB
     Dosage: OTHER
     Route: 058
     Dates: start: 20190107

REACTIONS (4)
  - Peripheral swelling [None]
  - Angioedema [None]
  - Staphylococcal infection [None]
  - Condition aggravated [None]

NARRATIVE: CASE EVENT DATE: 20190419
